FAERS Safety Report 12766688 (Version 2)
Quarter: 2020Q3

REPORT INFORMATION
  Report Type: Report from Study
  Country: CA (occurrence: CA)
  Receive Date: 20160921
  Receipt Date: 20161007
  Transmission Date: 20201104
  Serious: Yes (Hospitalization)
  Sender: FDA-Public Use
  Company Number: CA-PFIZER INC-2016434487

PATIENT
  Age: 70 Year
  Sex: Male

DRUGS (12)
  1. TYLENOL [Concomitant]
     Active Substance: ACETAMINOPHEN
     Route: 065
     Dates: start: 2006
  2. TIOTROPIUM [Concomitant]
     Active Substance: TIOTROPIUM
     Route: 065
     Dates: start: 2008
  3. SEPTRA [Concomitant]
     Active Substance: SULFAMETHOXAZOLE\TRIMETHOPRIM
     Route: 065
     Dates: start: 20160828, end: 20160907
  4. GEMCITABINE HYDROCHLORIDE. [Suspect]
     Active Substance: GEMCITABINE HYDROCHLORIDE
     Indication: BLADDER CANCER
     Dosage: 1000 MG (21 DAY CYCLE),THERAPY DURATION? 1 WEEK(S)
     Route: 042
     Dates: start: 20160817, end: 20160818
  5. MEDI4736 [Suspect]
     Active Substance: DURVALUMAB
     Indication: BLADDER CANCER
     Dosage: 1125 MG (21 DAY CYCLE)
     Route: 042
     Dates: start: 20160817, end: 20160818
  6. SYNTHROID [Concomitant]
     Active Substance: LEVOTHYROXINE SODIUM
     Route: 065
     Dates: start: 1966
  7. ASPIRIN. [Concomitant]
     Active Substance: ASPIRIN
     Route: 065
     Dates: start: 2006
  8. CARBOPLATIN. [Suspect]
     Active Substance: CARBOPLATIN
     Indication: BLADDER CANCER
     Dosage: 660 AUC (21 DAY CYCLE)
     Route: 042
     Dates: start: 20160817, end: 20160818
  9. OLMESARTAN [Concomitant]
     Active Substance: OLMESARTAN
     Route: 065
     Dates: start: 2001
  10. NAPROXEN. [Concomitant]
     Active Substance: NAPROXEN
     Route: 065
     Dates: start: 2010
  11. BUDESONIDE WITH FORMOTEROL [Concomitant]
     Route: 065
     Dates: start: 2008
  12. TREMELIMUMAB. [Suspect]
     Active Substance: TREMELIMUMAB
     Indication: BLADDER CANCER
     Dosage: 56 MG (21 DAY CYCLE)
     Route: 042
     Dates: start: 20160817, end: 20160818

REACTIONS (2)
  - Hypersensitivity [Recovered/Resolved]
  - Febrile neutropenia [Unknown]

NARRATIVE: CASE EVENT DATE: 20160905
